FAERS Safety Report 10235384 (Version 1)
Quarter: 2014Q2

REPORT INFORMATION
  Report Type: Spontaneous
  Country: US (occurrence: US)
  Receive Date: 20140613
  Receipt Date: 20140613
  Transmission Date: 20141212
  Serious: No
  Sender: FDA-Public Use
  Company Number: US-PFIZER INC-2014162915

PATIENT
  Age: 77 Year
  Sex: Male
  Weight: 70.75 kg

DRUGS (2)
  1. LIPITOR [Suspect]
     Indication: BLOOD CHOLESTEROL INCREASED
     Dosage: 80 MG, DAILY
     Dates: start: 2002
  2. ASPIRIN [Concomitant]
     Dosage: 81 MG, DAILY

REACTIONS (1)
  - Drug ineffective [Unknown]
